FAERS Safety Report 9783593 (Version 2)
Quarter: 2013Q4

REPORT INFORMATION
  Report Type: Spontaneous
  Country: CA (occurrence: CA)
  Receive Date: 20131226
  Receipt Date: 20131226
  Transmission Date: 20140711
  Serious: Yes (Hospitalization, Other)
  Sender: FDA-Public Use
  Company Number: CA-BAXTER-2013BAX048463

PATIENT
  Age: 59 Year
  Sex: Female

DRUGS (1)
  1. DIANEAL PD4 SOLUTION WITH 1.5% DEXTROSE AND 2.5 MEQ/L CALCIUM [Suspect]
     Indication: PERITONEAL DIALYSIS
     Dosage: 3 BAGS
     Route: 033
     Dates: start: 2009

REACTIONS (7)
  - Arthritis infective [Recovering/Resolving]
  - Sciatica [Unknown]
  - Weight decreased [Not Recovered/Not Resolved]
  - Abasia [Not Recovered/Not Resolved]
  - Peritoneal dialysis complication [Unknown]
  - Feeding disorder [Unknown]
  - Pruritus [Recovering/Resolving]
